FAERS Safety Report 6235094-4 (Version None)
Quarter: 2009Q2

REPORT INFORMATION
  Report Type: 
  Country: None (occurrence: None)
  Receive Date: 20090615
  Receipt Date: 20090529
  Transmission Date: 20091009
  Serious: Yes (Hospitalization)
  Sender: FDA-Public Use
  Company Number: 6051840

PATIENT
  Age: 84 Year
  Sex: Female

DRUGS (14)
  1. LEVOTHYROXINE SODIUM [Suspect]
     Indication: SECONDARY HYPOTHYROIDISM
     Dosage: 1 DOSAGE FORMS (1 DOSAGE FORMS, 1 IN 1 D) ORAL
     Route: 048
     Dates: end: 20090410
  2. COLCHIMAX (1 MG, TABLET) (COLCHICINE, DICYCLOVERINE HYDROCHLORIDE) [Suspect]
     Indication: ARTHRALGIA
     Dosage: 1 DOSAGE FORMS (1 DOSAGE FORMS, 1 IN 1 D) ORAL
     Route: 048
     Dates: start: 20090318, end: 20090414
  3. LYRICA [Suspect]
     Indication: PAIN
     Dosage: 1 DOSAGE FORMS (1 DOSAGE FORMS, 1 IN 1 D) ORAL
     Route: 048
     Dates: end: 20090410
  4. ASPIRIN [Suspect]
     Indication: PROPHYLAXIS
     Dosage: 1 DOSAGE FORMS (1 DOSAGE FORMS, 1 IN 1 D) ORAL
     Route: 048
     Dates: end: 20090410
  5. POTASSIUM CHLORIDE [Suspect]
     Indication: DRUG USE FOR UNKNOWN INDICATION
     Dosage: 4 DOSAGE FORMS (4 DOSAGE FORMS, 1 D) ORAL
     Route: 048
     Dates: end: 20090410
  6. FERROUS SULFATE TAB [Suspect]
     Indication: IRON DEFICIENCY
     Dosage: 2 DOSAGE FORMS (2 DOSAGE FORMS, 1 D) ORAL
     Route: 048
     Dates: end: 20090410
  7. ATACAND [Concomitant]
  8. LOXEN LP (CAPSULE) (NICARDIPINE HYDROCHLORIDE) [Concomitant]
  9. CORDARONE [Concomitant]
  10. LANTUS [Concomitant]
  11. ATROPINE (1 PERCENT, ORAL DROPS) (ATROPINE) [Concomitant]
  12. TOBREX (0.3 PERCENT, EYE DROPS) (TOBRAMYCIN) [Concomitant]
  13. IXPRIM (TABLET) (PARACETAMOL, TRAMADOL HYDROCHLORIDE) [Concomitant]
  14. DUROGESIC (TRANSDERMAL PATCH) (FENTANYL) [Concomitant]

REACTIONS (1)
  - PANCYTOPENIA [None]
